FAERS Safety Report 23062968 (Version 2)
Quarter: 2023Q4

REPORT INFORMATION
  Report Type: Report from Study
  Country: US (occurrence: None)
  Receive Date: 20231013
  Receipt Date: 20231108
  Transmission Date: 20240110
  Serious: Yes (Death, Other)
  Sender: FDA-Public Use
  Company Number: 2023A230844

PATIENT
  Age: 64 Year
  Sex: Male
  Weight: 122.5 kg

DRUGS (1)
  1. SYMBICORT [Suspect]
     Active Substance: BUDESONIDE\FORMOTEROL FUMARATE DIHYDRATE
     Dosage: UNKNOWN UNKNOWN
     Route: 055

REACTIONS (1)
  - Death [Fatal]
